FAERS Safety Report 18176955 (Version 1)
Quarter: 2020Q3

REPORT INFORMATION
  Report Type: Spontaneous
  Country: PL (occurrence: PL)
  Receive Date: 20200820
  Receipt Date: 20200820
  Transmission Date: 20201103
  Serious: Yes (Hospitalization)
  Sender: FDA-Public Use
  Company Number: PL-BAYER-2020-166282

PATIENT
  Age: 23 Year
  Sex: Female
  Weight: 75 kg

DRUGS (1)
  1. YASMINELLE [Suspect]
     Active Substance: DROSPIRENONE
     Indication: POLYCYSTIC OVARIES
     Dosage: 1 DF, QD
     Route: 048
     Dates: start: 20171007, end: 20171021

REACTIONS (4)
  - Hyperthyroidism [Recovering/Resolving]
  - Jaundice cholestatic [Recovering/Resolving]
  - Pruritus [Recovering/Resolving]
  - Hepatitis cholestatic [Recovering/Resolving]

NARRATIVE: CASE EVENT DATE: 20171021
